FAERS Safety Report 25711288 (Version 2)
Quarter: 2025Q4

REPORT INFORMATION
  Report Type: Spontaneous
  Country: US (occurrence: US)
  Receive Date: 20250821
  Receipt Date: 20251110
  Transmission Date: 20260118
  Serious: No
  Sender: MYLAN
  Company Number: US-MYLANLABS-2025M1068747

PATIENT
  Sex: Female

DRUGS (64)
  1. LYRICA [Suspect]
     Active Substance: PREGABALIN
     Indication: Product used for unknown indication
     Dosage: UNK
  2. LYRICA [Suspect]
     Active Substance: PREGABALIN
     Dosage: UNK
     Route: 065
  3. LYRICA [Suspect]
     Active Substance: PREGABALIN
     Dosage: UNK
     Route: 065
  4. LYRICA [Suspect]
     Active Substance: PREGABALIN
     Dosage: UNK
  5. LYRICA [Suspect]
     Active Substance: PREGABALIN
     Dosage: UNK (DECREASED DOSE)
  6. LYRICA [Suspect]
     Active Substance: PREGABALIN
     Dosage: UNK (DECREASED DOSE)
     Route: 065
  7. LYRICA [Suspect]
     Active Substance: PREGABALIN
     Dosage: UNK (DECREASED DOSE)
  8. LYRICA [Suspect]
     Active Substance: PREGABALIN
     Dosage: UNK (DECREASED DOSE)
     Route: 065
  9. LYRICA [Suspect]
     Active Substance: PREGABALIN
     Dosage: UNK, BID (2X/DAY)
     Route: 065
     Dates: start: 2025
  10. LYRICA [Suspect]
     Active Substance: PREGABALIN
     Dosage: UNK, BID (2X/DAY)
     Route: 065
     Dates: start: 2025
  11. LYRICA [Suspect]
     Active Substance: PREGABALIN
     Dosage: UNK, BID (2X/DAY)
     Dates: start: 2025
  12. LYRICA [Suspect]
     Active Substance: PREGABALIN
     Dosage: UNK, BID (2X/DAY)
     Dates: start: 2025
  13. BACLOFEN [Suspect]
     Active Substance: BACLOFEN
     Indication: Product used for unknown indication
     Dosage: UNK, TID (3X/DAY)
     Dates: end: 2025
  14. BACLOFEN [Suspect]
     Active Substance: BACLOFEN
     Dosage: UNK, TID (3X/DAY)
     Dates: end: 2025
  15. BACLOFEN [Suspect]
     Active Substance: BACLOFEN
     Dosage: UNK, TID (3X/DAY)
     Route: 065
     Dates: end: 2025
  16. BACLOFEN [Suspect]
     Active Substance: BACLOFEN
     Dosage: UNK, TID (3X/DAY)
     Route: 065
     Dates: end: 2025
  17. BACLOFEN [Suspect]
     Active Substance: BACLOFEN
     Dosage: UNK, BID (2X/DAY)
     Dates: start: 2025
  18. BACLOFEN [Suspect]
     Active Substance: BACLOFEN
     Dosage: UNK, BID (2X/DAY)
     Dates: start: 2025
  19. BACLOFEN [Suspect]
     Active Substance: BACLOFEN
     Dosage: UNK, BID (2X/DAY)
     Route: 065
     Dates: start: 2025
  20. BACLOFEN [Suspect]
     Active Substance: BACLOFEN
     Dosage: UNK, BID (2X/DAY)
     Route: 065
     Dates: start: 2025
  21. CLONAZEPAM [Concomitant]
     Active Substance: CLONAZEPAM
     Dosage: UNK
  22. CLONAZEPAM [Concomitant]
     Active Substance: CLONAZEPAM
     Dosage: UNK
     Route: 065
  23. CLONAZEPAM [Concomitant]
     Active Substance: CLONAZEPAM
     Dosage: UNK
     Route: 065
  24. CLONAZEPAM [Concomitant]
     Active Substance: CLONAZEPAM
     Dosage: UNK
  25. DEPAKOTE [Concomitant]
     Active Substance: DIVALPROEX SODIUM
     Dosage: UNK
  26. DEPAKOTE [Concomitant]
     Active Substance: DIVALPROEX SODIUM
     Dosage: UNK
     Route: 065
  27. DEPAKOTE [Concomitant]
     Active Substance: DIVALPROEX SODIUM
     Dosage: UNK
     Route: 065
  28. DEPAKOTE [Concomitant]
     Active Substance: DIVALPROEX SODIUM
     Dosage: UNK
  29. CYMBALTA [Concomitant]
     Active Substance: DULOXETINE HYDROCHLORIDE
     Dosage: UNK
  30. CYMBALTA [Concomitant]
     Active Substance: DULOXETINE HYDROCHLORIDE
     Dosage: UNK
     Route: 065
  31. CYMBALTA [Concomitant]
     Active Substance: DULOXETINE HYDROCHLORIDE
     Dosage: UNK
     Route: 065
  32. CYMBALTA [Concomitant]
     Active Substance: DULOXETINE HYDROCHLORIDE
     Dosage: UNK
  33. BISOPROLOL [Concomitant]
     Active Substance: BISOPROLOL
     Dosage: UNK
  34. BISOPROLOL [Concomitant]
     Active Substance: BISOPROLOL
     Dosage: UNK
     Route: 065
  35. BISOPROLOL [Concomitant]
     Active Substance: BISOPROLOL
     Dosage: UNK
     Route: 065
  36. BISOPROLOL [Concomitant]
     Active Substance: BISOPROLOL
     Dosage: UNK
  37. WELCHOL [Concomitant]
     Active Substance: COLESEVELAM HYDROCHLORIDE
     Dosage: UNK
  38. WELCHOL [Concomitant]
     Active Substance: COLESEVELAM HYDROCHLORIDE
     Dosage: UNK
     Route: 065
  39. WELCHOL [Concomitant]
     Active Substance: COLESEVELAM HYDROCHLORIDE
     Dosage: UNK
     Route: 065
  40. WELCHOL [Concomitant]
     Active Substance: COLESEVELAM HYDROCHLORIDE
     Dosage: UNK
  41. COLACE [Concomitant]
     Active Substance: DOCUSATE SODIUM
     Dosage: UNK
  42. COLACE [Concomitant]
     Active Substance: DOCUSATE SODIUM
     Dosage: UNK
     Route: 065
  43. COLACE [Concomitant]
     Active Substance: DOCUSATE SODIUM
     Dosage: UNK
     Route: 065
  44. COLACE [Concomitant]
     Active Substance: DOCUSATE SODIUM
     Dosage: UNK
  45. HYOSCYAMINE [Concomitant]
     Active Substance: HYOSCYAMINE
     Dosage: UNK
  46. HYOSCYAMINE [Concomitant]
     Active Substance: HYOSCYAMINE
     Dosage: UNK
     Route: 065
  47. HYOSCYAMINE [Concomitant]
     Active Substance: HYOSCYAMINE
     Dosage: UNK
     Route: 065
  48. HYOSCYAMINE [Concomitant]
     Active Substance: HYOSCYAMINE
     Dosage: UNK
  49. LEVOTHYROXINE [Concomitant]
     Active Substance: LEVOTHYROXINE
     Dosage: UNK
  50. LEVOTHYROXINE [Concomitant]
     Active Substance: LEVOTHYROXINE
     Dosage: UNK
     Route: 065
  51. LEVOTHYROXINE [Concomitant]
     Active Substance: LEVOTHYROXINE
     Dosage: UNK
     Route: 065
  52. LEVOTHYROXINE [Concomitant]
     Active Substance: LEVOTHYROXINE
     Dosage: UNK
  53. LOSARTAN [Concomitant]
     Active Substance: LOSARTAN
     Dosage: UNK
  54. LOSARTAN [Concomitant]
     Active Substance: LOSARTAN
     Dosage: UNK
     Route: 065
  55. LOSARTAN [Concomitant]
     Active Substance: LOSARTAN
     Dosage: UNK
     Route: 065
  56. LOSARTAN [Concomitant]
     Active Substance: LOSARTAN
     Dosage: UNK
  57. OXYBUTYNIN [Concomitant]
     Active Substance: OXYBUTYNIN
     Dosage: UNK
  58. OXYBUTYNIN [Concomitant]
     Active Substance: OXYBUTYNIN
     Dosage: UNK
     Route: 065
  59. OXYBUTYNIN [Concomitant]
     Active Substance: OXYBUTYNIN
     Dosage: UNK
     Route: 065
  60. OXYBUTYNIN [Concomitant]
     Active Substance: OXYBUTYNIN
     Dosage: UNK
  61. PREGABALIN [Concomitant]
     Active Substance: PREGABALIN
     Dosage: UNK
  62. PREGABALIN [Concomitant]
     Active Substance: PREGABALIN
     Dosage: UNK
     Route: 065
  63. PREGABALIN [Concomitant]
     Active Substance: PREGABALIN
     Dosage: UNK
     Route: 065
  64. PREGABALIN [Concomitant]
     Active Substance: PREGABALIN
     Dosage: UNK

REACTIONS (6)
  - Fibromyalgia [Unknown]
  - Pain [Unknown]
  - Asthenia [Unknown]
  - Depression [Unknown]
  - Somnolence [Unknown]
  - Tremor [Unknown]

NARRATIVE: CASE EVENT DATE: 20250101
